FAERS Safety Report 10192917 (Version 2)
Quarter: 2014Q2

REPORT INFORMATION
  Report Type: Spontaneous
  Country: FR (occurrence: FR)
  Receive Date: 20140523
  Receipt Date: 20140620
  Transmission Date: 20141212
  Serious: Yes (Life-Threatening)
  Sender: FDA-Public Use
  Company Number: FR-ASTRAZENECA-2014SE35598

PATIENT
  Age: 33054 Day
  Sex: Female

DRUGS (4)
  1. INEXIUM [Suspect]
     Route: 042
     Dates: start: 20140409, end: 20140428
  2. CLAFORAN [Suspect]
     Indication: ABDOMINAL SEPSIS
     Route: 041
     Dates: start: 20140411, end: 20140424
  3. FLAGYL [Concomitant]
     Indication: ABDOMINAL SEPSIS
  4. CALCIPARINE [Concomitant]
     Route: 058

REACTIONS (2)
  - Purpura [Unknown]
  - Thrombocytopenia [Recovered/Resolved]
